FAERS Safety Report 10134229 (Version 2)
Quarter: 2014Q2

REPORT INFORMATION
  Report Type: Spontaneous
  Country: US (occurrence: US)
  Receive Date: 20140428
  Receipt Date: 20140428
  Transmission Date: 20141212
  Serious: No
  Sender: FDA-Public Use
  Company Number: US-ASTRAZENECA-2008UW25052

PATIENT
  Age: 62 Year
  Sex: Female
  Weight: 72.6 kg

DRUGS (8)
  1. SYMBICORT [Suspect]
     Dosage: 2 PUFFS,UNKNOWN
     Route: 055
  2. PULMICORT FLEXHALER [Suspect]
     Indication: ASTHMA
     Dosage: 180 MCG
     Route: 055
     Dates: start: 20081107
  3. PULMICORT FLEXHALER [Suspect]
     Indication: BRONCHITIS
     Dosage: 180 MCG
     Route: 055
     Dates: start: 20081107
  4. FOSAMAX [Concomitant]
  5. CYSTOSPAZ [Concomitant]
  6. SPIRONOLACTONE [Concomitant]
  7. VYTORIN [Concomitant]
  8. PULMICORT RESPULES [Concomitant]
     Indication: NASAL POLYPS

REACTIONS (3)
  - Dry throat [Unknown]
  - Oropharyngeal pain [Unknown]
  - Extra dose administered [Unknown]
